FAERS Safety Report 12562942 (Version 2)
Quarter: 2016Q3

REPORT INFORMATION
  Report Type: Spontaneous
  Country: US (occurrence: US)
  Receive Date: 20160715
  Receipt Date: 20160922
  Transmission Date: 20161109
  Serious: Yes (Hospitalization, Other)
  Sender: FDA-Public Use
  Company Number: US-TEVA-676688USA

PATIENT
  Age: 70 Year
  Sex: Female

DRUGS (16)
  1. METOCLOPRAMIDE. [Concomitant]
     Active Substance: METOCLOPRAMIDE
  2. FUROSEMIDE. [Concomitant]
     Active Substance: FUROSEMIDE
  3. ASPIRIN. [Concomitant]
     Active Substance: ASPIRIN
  4. VENLAFAXINE [Concomitant]
     Active Substance: VENLAFAXINE HYDROCHLORIDE
  5. LIPITOR [Concomitant]
     Active Substance: ATORVASTATIN CALCIUM
  6. SINGULAIR [Concomitant]
     Active Substance: MONTELUKAST SODIUM
  7. MUCINEX [Concomitant]
     Active Substance: GUAIFENESIN
  8. LYRICA [Concomitant]
     Active Substance: PREGABALIN
  9. PRAVASTATIN. [Concomitant]
     Active Substance: PRAVASTATIN
  10. CEPHALEXIN. [Concomitant]
     Active Substance: CEPHALEXIN
  11. BISOPROLOL [Concomitant]
     Active Substance: BISOPROLOL
  12. POTASSIUM [Concomitant]
     Active Substance: POTASSIUM
  13. PANTOPRAZOLE [Concomitant]
     Active Substance: PANTOPRAZOLE SODIUM
  14. COPAXONE [Suspect]
     Active Substance: GLATIRAMER ACETATE
     Indication: MULTIPLE SCLEROSIS
     Route: 058
  15. CLONIDINE. [Concomitant]
     Active Substance: CLONIDINE
  16. AMANTADINE [Concomitant]
     Active Substance: AMANTADINE

REACTIONS (3)
  - Multiple sclerosis relapse [Unknown]
  - Infection [Unknown]
  - Osteomyelitis [Unknown]

NARRATIVE: CASE EVENT DATE: 20160423
